FAERS Safety Report 8740567 (Version 3)
Quarter: 2012Q4

REPORT INFORMATION
  Report Type: 
  Country: US (occurrence: US)
  Receive Date: 20120823
  Receipt Date: 20121203
  Transmission Date: 20130627
  Serious: Yes (Hospitalization, Other)
  Sender: FDA-Public Use
  Company Number: US-009507513-1208USA007434

PATIENT

DRUGS (2)
  1. NUVARING [Suspect]
     Indication: CONTRACEPTION
     Dosage: UNK
     Route: 067
     Dates: start: 20051215
  2. NUVARING [Suspect]
     Dosage: UNK
     Route: 067
     Dates: start: 20100314, end: 20101002

REACTIONS (3)
  - Hypokalaemia [Recovered/Resolved]
  - Pulmonary embolism [Unknown]
  - Hypertension [Unknown]
